FAERS Safety Report 8835189 (Version 3)
Quarter: 2012Q4

REPORT INFORMATION
  Report Type: 
  Country: CZ (occurrence: CZ)
  Receive Date: 20121011
  Receipt Date: 20121226
  Transmission Date: 20130627
  Serious: Yes (Life-Threatening, Other)
  Sender: FDA-Public Use
  Company Number: CZ-PFIZER INC-2012247175

PATIENT
  Age: 61 Year
  Sex: Female

DRUGS (12)
  1. DALACIN [Suspect]
     Indication: ERYSIPELAS
     Dosage: 600 mg, 4x/day
     Route: 042
     Dates: start: 20120924, end: 20120927
  2. CYNT [Concomitant]
     Dosage: 0.4 mg, UNK
  3. GLUCOPHAGE [Concomitant]
     Dosage: 500 mg, UNK
  4. RAMIPRIL [Concomitant]
     Dosage: 10 mg, UNK
  5. VESICARE [Concomitant]
     Dosage: 10 mg, UNK
  6. PARALEN [Concomitant]
     Dosage: 500 mg, UNK
  7. NAFTIDROFURYL OXALATE [Concomitant]
     Dosage: 100 mg, UNK
  8. SIMGAL [Concomitant]
     Dosage: 50 mg, UNK
  9. VEROSPIRON [Concomitant]
     Dosage: 50 mg, UNK
  10. MIXTARD [Concomitant]
     Dosage: Mixtard 30 Penfill: 28 units - 0 - 25 units
  11. INDAP [Concomitant]
     Dosage: UNK
  12. AMLODIPINE BESILATE [Concomitant]
     Dosage: 10 mg, UNK

REACTIONS (2)
  - Anaphylactic reaction [Recovered/Resolved]
  - Dyspnoea [Recovered/Resolved]
